FAERS Safety Report 17869081 (Version 4)
Quarter: 2020Q2

REPORT INFORMATION
  Report Type: Report from Study
  Country: None (occurrence: CA)
  Receive Date: 20200608
  Receipt Date: 20200625
  Transmission Date: 20200714
  Serious: Yes (Other)
  Sender: FDA-Public Use
  Company Number: CA-ABBVIE-20K-028-3431522-00

PATIENT
  Sex: Male

DRUGS (2)
  1. IRON [Suspect]
     Active Substance: IRON
     Indication: PRODUCT USED FOR UNKNOWN INDICATION
     Route: 065
  2. HUMIRA [Suspect]
     Active Substance: ADALIMUMAB
     Indication: CROHN^S DISEASE
     Route: 058
     Dates: start: 20200302, end: 20200623

REACTIONS (14)
  - Weight decreased [Not Recovered/Not Resolved]
  - Abdominal pain [Not Recovered/Not Resolved]
  - Metastases to liver [Not Recovered/Not Resolved]
  - Fatigue [Not Recovered/Not Resolved]
  - Loss of personal independence in daily activities [Not Recovered/Not Resolved]
  - Decreased appetite [Not Recovered/Not Resolved]
  - Nausea [Not Recovered/Not Resolved]
  - Pain [Unknown]
  - Blood disorder [Not Recovered/Not Resolved]
  - Mobility decreased [Not Recovered/Not Resolved]
  - Malaise [Not Recovered/Not Resolved]
  - Nodule [Not Recovered/Not Resolved]
  - Diarrhoea [Not Recovered/Not Resolved]
  - Decreased appetite [Unknown]

NARRATIVE: CASE EVENT DATE: 2020
